FAERS Safety Report 20073812 (Version 1)
Quarter: 2021Q4

REPORT INFORMATION
  Report Type: Spontaneous
  Country: US (occurrence: US)
  Receive Date: 20211116
  Receipt Date: 20211116
  Transmission Date: 20220303
  Serious: No
  Sender: FDA-Public Use
  Company Number: US-ALLERGAN-2108962US

PATIENT
  Sex: Female

DRUGS (2)
  1. ALPHAGAN P [Suspect]
     Active Substance: BRIMONIDINE TARTRATE
     Indication: Glaucoma
     Dosage: UNKNOWN NUMBER OF GTTS OR  TIMES DAILY
     Route: 047
     Dates: start: 202003, end: 202101
  2. UNK glaucoma drops [Concomitant]
     Indication: Glaucoma
     Route: 047

REACTIONS (3)
  - Condition aggravated [Unknown]
  - Drug hypersensitivity [Not Recovered/Not Resolved]
  - Blepharitis [Recovered/Resolved]

NARRATIVE: CASE EVENT DATE: 20201101
